FAERS Safety Report 9647454 (Version 1)
Quarter: 2013Q4

REPORT INFORMATION
  Report Type: Spontaneous
  Country: US (occurrence: US)
  Receive Date: 20131028
  Receipt Date: 20131028
  Transmission Date: 20140711
  Serious: Yes (Death, Hospitalization)
  Sender: FDA-Public Use
  Company Number: US-BIOGENIDEC-2013BI101922

PATIENT
  Sex: Male

DRUGS (1)
  1. AVONEX [Suspect]
     Indication: MULTIPLE SCLEROSIS
     Route: 030
     Dates: start: 20000417, end: 2003

REACTIONS (5)
  - Multiple sclerosis [Fatal]
  - Gastric ulcer haemorrhage [Fatal]
  - Cardiac failure congestive [Fatal]
  - Gastric haemorrhage [Recovered/Resolved]
  - Drug ineffective [Unknown]
